FAERS Safety Report 4989293-X (Version None)
Quarter: 2006Q2

REPORT INFORMATION
  Report Type: 
  Country: None (occurrence: None)
  Receive Date: 20060426
  Receipt Date: 20060417
  Transmission Date: 20061013
  Serious: Yes (Other)
  Sender: FDA-Public Use
  Company Number: 200610436GDS

PATIENT
  Age: 56 Year
  Sex: Female

DRUGS (6)
  1. CIPROFLOXACIN HCL [Suspect]
     Indication: OTITIS EXTERNA
     Dosage: 500 MG, TOTAL DAILY, ORAL
     Route: 048
     Dates: start: 20050806, end: 20050811
  2. NOVOLIN 70/30 [Suspect]
     Dosage: SEE IMAGE
     Route: 058
     Dates: start: 20010101, end: 20050811
  3. NOVOLIN 70/30 [Suspect]
     Dosage: SEE IMAGE
     Route: 058
     Dates: start: 20050812
  4. HYDROCHLOROTHIAZIDE [Concomitant]
  5. METFORMIN [Concomitant]
  6. ALTACE [Concomitant]

REACTIONS (7)
  - ABDOMINAL PAIN UPPER [None]
  - CHEST DISCOMFORT [None]
  - DIZZINESS [None]
  - DRUG INTERACTION [None]
  - DYSPNOEA [None]
  - HYPOGLYCAEMIA [None]
  - MALAISE [None]
